FAERS Safety Report 8044610-1 (Version None)
Quarter: 2011Q4

REPORT INFORMATION
  Report Type: 
  Country: None (occurrence: None)
  Receive Date: 20111202
  Receipt Date: 20110910
  Transmission Date: 20120403
  Serious: Yes (Other)
  Sender: FDA-Public Use
  Company Number: 2011SP042921

PATIENT
  Age: 38 Year
  Sex: Female

DRUGS (2)
  1. METFORMIN HCL [Concomitant]
  2. NUVARING [Suspect]
     Indication: CONTRACEPTION

REACTIONS (2)
  - TRANSIENT ISCHAEMIC ATTACK [None]
  - HEADACHE [None]
